FAERS Safety Report 19019581 (Version 1)
Quarter: 2021Q1

REPORT INFORMATION
  Report Type: Spontaneous
  Country: US (occurrence: US)
  Receive Date: 20210316
  Receipt Date: 20210316
  Transmission Date: 20210420
  Serious: Yes (Other)
  Sender: FDA-Public Use
  Company Number: US-ASTRAZENECA-2021A142620

PATIENT
  Age: 56 Year
  Sex: Female
  Weight: 103.4 kg

DRUGS (50)
  1. LISINOPRIL. [Concomitant]
     Active Substance: LISINOPRIL
     Indication: HYPERTENSION
     Dates: start: 20080303, end: 20170424
  2. NAPROXEN. [Concomitant]
     Active Substance: NAPROXEN
     Indication: PAIN
     Dates: start: 20130319, end: 20131106
  3. METOPROLOL. [Concomitant]
     Active Substance: METOPROLOL
  4. TIZANIDINE. [Concomitant]
     Active Substance: TIZANIDINE
  5. SENNA [Concomitant]
     Active Substance: SENNA LEAF\SENNOSIDES\SENNOSIDES A AND B
  6. HYDRALAZINE [Concomitant]
     Active Substance: HYDRALAZINE HYDROCHLORIDE
  7. GADOBUTROL. [Concomitant]
     Active Substance: GADOBUTROL
  8. MILK OF MAGNESIA [Concomitant]
     Active Substance: MAGNESIUM HYDROXIDE
  9. OMEPRAZOLE. [Suspect]
     Active Substance: OMEPRAZOLE
     Indication: GASTROOESOPHAGEAL REFLUX DISEASE
     Dosage: GENERIC
     Route: 065
     Dates: start: 20130903, end: 20131003
  10. PREVACID [Suspect]
     Active Substance: LANSOPRAZOLE
     Indication: GASTROOESOPHAGEAL REFLUX DISEASE
     Route: 065
     Dates: start: 2005, end: 2013
  11. ATORVASTATIN [Concomitant]
     Active Substance: ATORVASTATIN
     Indication: DRUG THERAPY
     Dates: start: 20160713, end: 20170424
  12. MECLIZINE [Concomitant]
     Active Substance: MECLIZINE HYDROCHLORIDE
  13. HYOSCYAMINE. [Concomitant]
     Active Substance: HYOSCYAMINE
  14. CLINDAMYCIN. [Concomitant]
     Active Substance: CLINDAMYCIN
  15. TYLENOL [Concomitant]
     Active Substance: ACETAMINOPHEN
  16. ZOFRAN [Concomitant]
     Active Substance: ONDANSETRON HYDROCHLORIDE
  17. BENADRYL [Concomitant]
     Active Substance: DIPHENHYDRAMINE HYDROCHLORIDE
  18. TRAMADOL. [Concomitant]
     Active Substance: TRAMADOL
     Indication: DRUG THERAPY
     Dates: start: 20130319, end: 20170819
  19. AMLODIPINE [Concomitant]
     Active Substance: AMLODIPINE BESYLATE
     Indication: HYPERTENSION
     Dates: start: 20160506, end: 20170424
  20. LISINOPRIL/HCTZ [Concomitant]
     Active Substance: HYDROCHLOROTHIAZIDE\LISINOPRIL
  21. OXYCODONE/ACETAMINOPHEN [Concomitant]
     Active Substance: ACETAMINOPHEN\OXYCODONE HYDROCHLORIDE
  22. GABAPENTIN. [Concomitant]
     Active Substance: GABAPENTIN
  23. FAMOTIDINE. [Concomitant]
     Active Substance: FAMOTIDINE
     Dates: start: 20171004
  24. SMZ/TMP [Concomitant]
     Active Substance: SULFAMETHOXAZOLE\TRIMETHOPRIM
  25. FLUCONAZOLE. [Concomitant]
     Active Substance: FLUCONAZOLE
  26. VANCOMYCIN [Concomitant]
     Active Substance: VANCOMYCIN
  27. POLYETHYLENE GLYCOL [Concomitant]
     Active Substance: POLYETHYLENE GLYCOLS
  28. LIDOCAINE. [Concomitant]
     Active Substance: LIDOCAINE
  29. ENOXAPARIN [Concomitant]
     Active Substance: ENOXAPARIN
  30. ATIVAN [Concomitant]
     Active Substance: LORAZEPAM
  31. PIROXICAM. [Concomitant]
     Active Substance: PIROXICAM
  32. PREDNISONE. [Concomitant]
     Active Substance: PREDNISONE
  33. IBUPROFEN. [Concomitant]
     Active Substance: IBUPROFEN
  34. KETOROLAC [Concomitant]
     Active Substance: KETOROLAC TROMETHAMINE
  35. CEFTRIAXONE. [Concomitant]
     Active Substance: CEFTRIAXONE
  36. HYDROMORPHONE [Concomitant]
     Active Substance: HYDROMORPHONE
  37. DEXILANT [Suspect]
     Active Substance: DEXLANSOPRAZOLE
     Indication: GASTROOESOPHAGEAL REFLUX DISEASE
     Route: 065
     Dates: start: 20160922, end: 20170902
  38. PREVACID 24 HR [Suspect]
     Active Substance: LANSOPRAZOLE
     Indication: GASTROOESOPHAGEAL REFLUX DISEASE
     Route: 065
     Dates: start: 2009, end: 2013
  39. VITAMIN D [Concomitant]
     Active Substance: VITAMIN D NOS
     Indication: HYPOVITAMINOSIS
     Dates: start: 2017, end: 2018
  40. ACETAMINOPHEN AND CODEINE [Concomitant]
     Active Substance: ACETAMINOPHEN\CODEINE PHOSPHATE
  41. PREVPAC [Concomitant]
     Active Substance: AMOXICILLIN\CLARITHROMYCIN\LANSOPRAZOLE
  42. PENICILLIN VK [Concomitant]
     Active Substance: PENICILLIN V POTASSIUM
  43. DOXYCYCLINE. [Concomitant]
     Active Substance: DOXYCYCLINE
  44. AMITRIPTYLINE [Concomitant]
     Active Substance: AMITRIPTYLINE
  45. PIPERACILLIN/TAZOBACTAM [Concomitant]
     Active Substance: PIPERACILLIN SODIUM\TAZOBACTAM SODIUM
  46. CUBICIN [Concomitant]
     Active Substance: DAPTOMYCIN
  47. HYDROCHLOROTHIAZIDE. [Concomitant]
     Active Substance: HYDROCHLOROTHIAZIDE
  48. CIPROFLOXACIN. [Concomitant]
     Active Substance: CIPROFLOXACIN
  49. TAMSULOSIN [Concomitant]
     Active Substance: TAMSULOSIN
  50. LACTULOSE. [Concomitant]
     Active Substance: LACTULOSE

REACTIONS (4)
  - Acute kidney injury [Not Recovered/Not Resolved]
  - Chronic kidney disease [Not Recovered/Not Resolved]
  - End stage renal disease [Unknown]
  - Tubulointerstitial nephritis [Not Recovered/Not Resolved]

NARRATIVE: CASE EVENT DATE: 2017
